FAERS Safety Report 7530630-X (Version None)
Quarter: 2011Q2

REPORT INFORMATION
  Report Type: 
  Country: None (occurrence: None)
  Receive Date: 20110607
  Receipt Date: 20110127
  Transmission Date: 20111010
  Serious: No
  Sender: FDA-Public Use
  Company Number: US-BAYER-2011-037292

PATIENT
  Sex: Male
  Weight: 89.796 kg

DRUGS (1)
  1. ALEVE (CAPLET) [Suspect]
     Indication: PROCEDURAL PAIN
     Dosage: UNK UNK, BID
     Route: 048

REACTIONS (1)
  - WEIGHT INCREASED [None]
